FAERS Safety Report 4964118-7 (Version None)
Quarter: 2006Q1

REPORT INFORMATION
  Report Type: 
  Country: None (occurrence: None)
  Receive Date: 20060330
  Receipt Date: 20060309
  Transmission Date: 20060701
  Serious: Yes (Hospitalization, Other)
  Sender: FDA-Public Use
  Company Number: US200602001936

PATIENT
  Age: 38 Year
  Sex: Female

DRUGS (2)
  1. FORTEO [Suspect]
     Indication: OSTEOPOROSIS
     Dates: start: 20050801
  2. FORTEO PEN (FORTEO PEN)) PEN, DISPOSABLE [Concomitant]

REACTIONS (8)
  - ANKLE FRACTURE [None]
  - ARTHROPATHY [None]
  - FALL [None]
  - FEMORAL NECK FRACTURE [None]
  - FRACTURE NONUNION [None]
  - PATELLA FRACTURE [None]
  - PHARMACEUTICAL PRODUCT COMPLAINT [None]
  - REFUSAL OF TREATMENT BY PATIENT [None]
